FAERS Safety Report 4273773-9 (Version None)
Quarter: 2004Q1

REPORT INFORMATION
  Report Type: 
  Country: None (occurrence: None)
  Receive Date: 20040114
  Receipt Date: 20040106
  Transmission Date: 20041129
  Serious: Yes (Other)
  Sender: FDA-Public Use
  Company Number: 2003-11-0541

PATIENT
  Age: 30 Year

DRUGS (1)
  1. CLARITIN [Suspect]
     Indication: SEASONAL ALLERGY
     Dosage: OPHTHALMIC
     Route: 047

REACTIONS (1)
  - CORNEAL DEPOSITS [None]
